FAERS Safety Report 8180246-X (Version None)
Quarter: 2012Q1

REPORT INFORMATION
  Report Type: 
  Country: None (occurrence: None)
  Receive Date: 20120302
  Receipt Date: 20110720
  Transmission Date: 20120608
  Serious: No
  Sender: FDA-Public Use
  Company Number: US-GLAXOSMITHKLINE-A0900163A

PATIENT
  Age: 62 Year
  Sex: Female

DRUGS (14)
  1. SINGULAIR [Concomitant]
  2. ROBAXIN [Concomitant]
  3. GABAPENTIN [Concomitant]
  4. ESTROGEN [Concomitant]
  5. NEXIUM [Concomitant]
  6. UNSPECIFIED DRUG [Concomitant]
  7. ZYRTEC [Concomitant]
  8. SAVELLA [Concomitant]
  9. TOPAMAX [Concomitant]
  10. CLOBETASOL PROPIONATE [Suspect]
     Indication: WOUND
     Dosage: 1APP TWICE PER DAY
     Route: 061
     Dates: start: 20080101
  11. OPANA [Concomitant]
  12. ZANAFLEX [Concomitant]
  13. SYNTHROID [Concomitant]
  14. CRESTOR [Concomitant]

REACTIONS (5)
  - BURNING SENSATION [None]
  - PAIN [None]
  - MEDICATION ERROR [None]
  - IMPAIRED HEALING [None]
  - PRODUCT QUALITY ISSUE [None]
